FAERS Safety Report 16861393 (Version 1)
Quarter: 2019Q3

REPORT INFORMATION
  Report Type: Report from Study
  Country: DE (occurrence: DE)
  Receive Date: 20190927
  Receipt Date: 20190927
  Transmission Date: 20191005
  Serious: Yes (Hospitalization)
  Sender: FDA-Public Use
  Company Number: DE-MYLANLABS-2019M1090000

PATIENT
  Age: 31 Year
  Sex: Male
  Weight: 70 kg

DRUGS (7)
  1. STELARA [Suspect]
     Active Substance: USTEKINUMAB
     Indication: CROHN^S DISEASE
     Dosage: 90 MILLIGRAM
     Route: 058
     Dates: start: 20190201
  2. METRONIDAZOLE. [Concomitant]
     Active Substance: METRONIDAZOLE
     Indication: POUCHITIS
     Dosage: DOSAGE FORM: UNSPECIFIED (1200 MG, QD)
     Route: 065
     Dates: start: 20190405, end: 20190415
  3. URSOFALK [Concomitant]
     Active Substance: URSODIOL
     Indication: CHOLELITHIASIS
     Dosage: DOSAGE FORM: UNSPECIFIED (750 MG, QD)
     Route: 065
     Dates: start: 20180803
  4. ETORICOXIB. [Concomitant]
     Active Substance: ETORICOXIB
     Indication: ARTHRALGIA
     Dosage: DOSAGE FORM: UNSPECIFIED (60 MG, QD)
     Route: 065
     Dates: start: 20190405
  5. PANTOPRAZOL                        /01263201/ [Concomitant]
     Active Substance: PANTOPRAZOLE
     Indication: GASTRIC ULCER
     Dosage: DOSAGE FORM: UNSPECIFIED (40 MG, QD)
     Route: 065
  6. AZATHIOPRINE. [Suspect]
     Active Substance: AZATHIOPRINE
     Indication: CROHN^S DISEASE
     Dosage: DOSAGE FORM: UNSPECIFIED (75 MG, QD)
     Route: 065
     Dates: start: 20180626
  7. BUDESONIDE. [Suspect]
     Active Substance: BUDESONIDE
     Indication: CROHN^S DISEASE
     Dosage: DOSAGE FORM: UNSPECIFIED (2 MG, QD)
     Route: 065
     Dates: start: 20190405

REACTIONS (5)
  - Frequent bowel movements [Not Recovered/Not Resolved]
  - Night sweats [Not Recovered/Not Resolved]
  - Arthralgia [Not Recovered/Not Resolved]
  - Musculoskeletal pain [Not Recovered/Not Resolved]
  - Decreased appetite [Not Recovered/Not Resolved]

NARRATIVE: CASE EVENT DATE: 201903
